FAERS Safety Report 6958941-7 (Version None)
Quarter: 2010Q3

REPORT INFORMATION
  Report Type: 
  Country: None (occurrence: None)
  Receive Date: 20100831
  Receipt Date: 20100817
  Transmission Date: 20110219
  Serious: Yes (Death, Other)
  Sender: FDA-Public Use
  Company Number: JP-MYLANLABS-2010S1014883

PATIENT
  Sex: Female

DRUGS (2)
  1. PACLITAXEL [Suspect]
     Indication: ADENOCARCINOMA
     Dosage: SHE HAD RECEIVED 3 CYCLES
     Route: 042
  2. CARBOPLATIN [Suspect]
     Indication: ADENOCARCINOMA
     Dosage: AREA UNDER THE CURVE OF 2; SHE HAD RECEIVED 3 CYCLES
     Route: 042

REACTIONS (2)
  - DISSEMINATED INTRAVASCULAR COAGULATION [None]
  - SYSTEMIC INFLAMMATORY RESPONSE SYNDROME [None]
